FAERS Safety Report 6199708-X (Version None)
Quarter: 2009Q2

REPORT INFORMATION
  Report Type: 
  Country: None (occurrence: None)
  Receive Date: 20090522
  Receipt Date: 20090511
  Transmission Date: 20091009
  Serious: Yes (Death, Other)
  Sender: FDA-Public Use
  Company Number: CA-PFIZER INC-2009212395

PATIENT
  Age: 78 Year

DRUGS (3)
  1. DIFLUCAN [Suspect]
     Dosage: 150 MG, 1X/DAY
     Route: 048
     Dates: start: 20090510
  2. CLORAZEPATE DIPOTASSIUM [Concomitant]
     Dosage: UNK
  3. DRUG, UNSPECIFIED [Concomitant]

REACTIONS (2)
  - DEATH [None]
  - DELIRIUM [None]
